FAERS Safety Report 13253967 (Version 2)
Quarter: 2018Q2

REPORT INFORMATION
  Report Type: Spontaneous
  Country: RU (occurrence: RU)
  Receive Date: 20170220
  Receipt Date: 20180606
  Transmission Date: 20180711
  Serious: Yes (Other)
  Sender: FDA-Public Use
  Company Number: RU-ASTRAZENECA-2017SE17029

PATIENT
  Age: 80 Year
  Sex: Female

DRUGS (4)
  1. ESSENTIALE [Concomitant]
  2. BRILINTA [Suspect]
     Active Substance: TICAGRELOR
     Indication: STENT PLACEMENT
     Route: 048
     Dates: start: 20160803
  3. PRESTARIUM [Concomitant]
     Active Substance: PERINDOPRIL
  4. BIPROL [Concomitant]
     Active Substance: BISOPROLOL FUMARATE

REACTIONS (4)
  - Dermatitis allergic [Not Recovered/Not Resolved]
  - Intentional product misuse [Not Recovered/Not Resolved]
  - Hepatomegaly [Not Recovered/Not Resolved]
  - Benign ear neoplasm [Not Recovered/Not Resolved]

NARRATIVE: CASE EVENT DATE: 20170209
